FAERS Safety Report 23611273 (Version 2)
Quarter: 2024Q1

REPORT INFORMATION
  Report Type: Spontaneous
  Country: US (occurrence: US)
  Receive Date: 20240308
  Receipt Date: 20240311
  Transmission Date: 20240410
  Serious: No
  Sender: FDA-Public Use
  Company Number: US-002147023-NVSC2024US050505

PATIENT

DRUGS (1)
  1. LEQVIO [Suspect]
     Active Substance: INCLISIRAN SODIUM
     Indication: Product used for unknown indication
     Dosage: 284MG/1.5 ML (INITIAL/3 MONTH/6 MONTHS FOLLOWING)
     Route: 058
     Dates: start: 20231201, end: 20240301

REACTIONS (1)
  - Low density lipoprotein increased [Unknown]
